FAERS Safety Report 24831945 (Version 4)
Quarter: 2025Q1

REPORT INFORMATION
  Report Type: Spontaneous
  Country: CA (occurrence: CA)
  Receive Date: 20250110
  Receipt Date: 20250328
  Transmission Date: 20250409
  Serious: Yes (Congenital Anomaly)
  Sender: PFIZER
  Company Number: CA-HALEON-2219071

PATIENT

DRUGS (168)
  1. ENBREL [Suspect]
     Active Substance: ETANERCEPT
     Route: 064
  2. ENBREL [Suspect]
     Active Substance: ETANERCEPT
     Route: 064
  3. ENBREL [Suspect]
     Active Substance: ETANERCEPT
     Dosage: 50 MG, QW
     Route: 064
  4. ADALIMUMAB [Suspect]
     Active Substance: ADALIMUMAB
     Route: 064
  5. ADALIMUMAB [Suspect]
     Active Substance: ADALIMUMAB
     Route: 064
  6. INFLIXIMAB [Suspect]
     Active Substance: INFLIXIMAB
     Route: 064
  7. INFLIXIMAB [Suspect]
     Active Substance: INFLIXIMAB
     Route: 064
  8. INFLIXIMAB [Suspect]
     Active Substance: INFLIXIMAB
     Route: 064
  9. INFLIXIMAB [Suspect]
     Active Substance: INFLIXIMAB
     Route: 064
  10. METHOTREXATE SODIUM [Suspect]
     Active Substance: METHOTREXATE SODIUM
     Route: 065
  11. METHOTREXATE SODIUM [Suspect]
     Active Substance: METHOTREXATE SODIUM
     Route: 064
  12. XELJANZ [Suspect]
     Active Substance: TOFACITINIB CITRATE
  13. HYDROCORTISONE [Suspect]
     Active Substance: HYDROCORTISONE
     Route: 065
  14. HYDROCORTISONE [Suspect]
     Active Substance: HYDROCORTISONE
     Route: 064
  15. METHYLPREDNISOLONE [Suspect]
     Active Substance: METHYLPREDNISOLONE
     Route: 065
  16. METHYLPREDNISOLONE [Suspect]
     Active Substance: METHYLPREDNISOLONE
     Route: 064
  17. METHYLPREDNISOLONE SODIUM SUCCINATE [Suspect]
     Active Substance: METHYLPREDNISOLONE SODIUM SUCCINATE
  18. METHYLPREDNISOLONE SODIUM SUCCINATE [Suspect]
     Active Substance: METHYLPREDNISOLONE SODIUM SUCCINATE
     Route: 064
  19. RITUXIMAB [Suspect]
     Active Substance: RITUXIMAB
     Route: 064
  20. RITUXIMAB [Suspect]
     Active Substance: RITUXIMAB
     Route: 064
  21. RITUXIMAB [Suspect]
     Active Substance: RITUXIMAB
     Route: 064
  22. RITUXIMAB [Suspect]
     Active Substance: RITUXIMAB
     Route: 064
  23. RITUXIMAB [Suspect]
     Active Substance: RITUXIMAB
     Route: 064
  24. RITUXIMAB [Suspect]
     Active Substance: RITUXIMAB
     Route: 064
  25. RITUXIMAB [Suspect]
     Active Substance: RITUXIMAB
     Route: 064
  26. SULFASALAZINE [Suspect]
     Active Substance: SULFASALAZINE
  27. DICLOFENAC [Suspect]
     Active Substance: DICLOFENAC
     Route: 064
  28. DICLOFENAC [Suspect]
     Active Substance: DICLOFENAC
     Route: 064
  29. CANDESARTAN [Suspect]
     Active Substance: CANDESARTAN
     Route: 065
  30. CANDESARTAN [Suspect]
     Active Substance: CANDESARTAN
     Route: 064
  31. AIMOVIG [Suspect]
     Active Substance: ERENUMAB-AOOE
     Route: 064
  32. AIMOVIG [Suspect]
     Active Substance: ERENUMAB-AOOE
     Route: 064
  33. COSENTYX [Suspect]
     Active Substance: SECUKINUMAB
     Route: 065
  34. COSENTYX [Suspect]
     Active Substance: SECUKINUMAB
     Route: 064
  35. LEFLUNOMIDE [Suspect]
     Active Substance: LEFLUNOMIDE
     Route: 065
  36. LEFLUNOMIDE [Suspect]
     Active Substance: LEFLUNOMIDE
     Route: 064
  37. OXYCODONE [Suspect]
     Active Substance: OXYCODONE
     Route: 065
  38. METFORMIN HYDROCHLORIDE [Suspect]
     Active Substance: METFORMIN HYDROCHLORIDE
     Route: 065
  39. ALENDRONIC ACID [Suspect]
     Active Substance: ALENDRONIC ACID
     Route: 065
  40. ALENDRONIC ACID [Suspect]
     Active Substance: ALENDRONIC ACID
     Route: 064
  41. PANADOL [Suspect]
     Active Substance: ACETAMINOPHEN
     Route: 065
  42. ACETAMINOPHEN [Suspect]
     Active Substance: ACETAMINOPHEN
     Route: 065
  43. ACETAMINOPHEN [Suspect]
     Active Substance: ACETAMINOPHEN
     Route: 064
  44. PHENYLEPHRINE HYDROCHLORIDE [Suspect]
     Active Substance: PHENYLEPHRINE HYDROCHLORIDE
     Route: 065
  45. PHENYLEPHRINE HYDROCHLORIDE [Suspect]
     Active Substance: PHENYLEPHRINE HYDROCHLORIDE
     Route: 064
  46. NICOTINAMIDE [Suspect]
     Active Substance: NIACINAMIDE
     Route: 065
  47. NICOTINAMIDE [Suspect]
     Active Substance: NIACINAMIDE
     Route: 065
  48. CHLORHEXIDINE GLUCONATE [Suspect]
     Active Substance: CHLORHEXIDINE GLUCONATE
     Route: 065
  49. CHLORHEXIDINE GLUCONATE [Suspect]
     Active Substance: CHLORHEXIDINE GLUCONATE
     Route: 065
  50. VITAMIN C [Suspect]
     Active Substance: ASCORBIC ACID
     Route: 065
  51. VITAMIN C [Suspect]
     Active Substance: ASCORBIC ACID
     Route: 065
  52. ACETAMINOPHEN [Suspect]
     Active Substance: ACETAMINOPHEN
     Route: 065
  53. ACETAMINOPHEN [Suspect]
     Active Substance: ACETAMINOPHEN
     Route: 065
  54. CHOLECALCIFEROL [Suspect]
     Active Substance: CHOLECALCIFEROL
     Route: 065
  55. CHOLECALCIFEROL [Suspect]
     Active Substance: CHOLECALCIFEROL
     Route: 064
  56. ACETAMINOPHEN AND CODEINE [Suspect]
     Active Substance: ACETAMINOPHEN\CODEINE PHOSPHATE
     Route: 065
  57. ACETAMINOPHEN AND CODEINE [Suspect]
     Active Substance: ACETAMINOPHEN\CODEINE PHOSPHATE
     Route: 065
  58. ACTEMRA [Suspect]
     Active Substance: TOCILIZUMAB
     Route: 065
  59. ACTEMRA [Suspect]
     Active Substance: TOCILIZUMAB
     Route: 064
  60. ALENDRONATE SODIUM [Suspect]
     Active Substance: ALENDRONATE SODIUM
  61. LEFLUNOMIDE [Suspect]
     Active Substance: LEFLUNOMIDE
     Route: 065
  62. LEFLUNOMIDE [Suspect]
     Active Substance: LEFLUNOMIDE
     Route: 064
  63. PREDNISONE [Suspect]
     Active Substance: PREDNISONE
     Route: 065
  64. PREDNISONE [Suspect]
     Active Substance: PREDNISONE
     Route: 064
  65. ARAVA [Suspect]
     Active Substance: LEFLUNOMIDE
     Route: 065
  66. ARAVA [Suspect]
     Active Substance: LEFLUNOMIDE
     Route: 064
  67. ATOMOXETINE [Suspect]
     Active Substance: ATOMOXETINE
     Route: 065
  68. ATOMOXETINE [Suspect]
     Active Substance: ATOMOXETINE
     Route: 064
  69. AZATHIOPRINE [Suspect]
     Active Substance: AZATHIOPRINE
     Route: 065
  70. AZATHIOPRINE [Suspect]
     Active Substance: AZATHIOPRINE
     Route: 064
  71. AZATHIOPRINE [Suspect]
     Active Substance: AZATHIOPRINE
     Route: 064
  72. BERINERT [Suspect]
     Active Substance: HUMAN C1-ESTERASE INHIBITOR
     Route: 065
  73. BERINERT [Suspect]
     Active Substance: HUMAN C1-ESTERASE INHIBITOR
     Route: 065
  74. BERINERT [Suspect]
     Active Substance: HUMAN C1-ESTERASE INHIBITOR
     Route: 064
  75. BOTULINUM TOXIN TYPE A [Suspect]
     Active Substance: BOTULINUM TOXIN TYPE A
  76. BOTULINUM TOXIN TYPE A [Suspect]
     Active Substance: BOTULINUM TOXIN TYPE A
     Route: 065
  77. BOTULINUM TOXIN TYPE A [Suspect]
     Active Substance: BOTULINUM TOXIN TYPE A
     Route: 064
  78. BUTRANS [Suspect]
     Active Substance: BUPRENORPHINE
     Route: 065
  79. BUTRANS [Suspect]
     Active Substance: BUPRENORPHINE
     Route: 064
  80. CALCIUM ASCORBATE [Suspect]
     Active Substance: CALCIUM ASCORBATE
     Route: 065
  81. CALCIUM ASCORBATE [Suspect]
     Active Substance: CALCIUM ASCORBATE
     Route: 064
  82. CALCIUM CITRATE [Suspect]
     Active Substance: CALCIUM CITRATE
  83. CALCIUM CITRATE [Suspect]
     Active Substance: CALCIUM CITRATE
     Route: 064
  84. CALCIUM GLUBIONATE [Suspect]
     Active Substance: CALCIUM GLUBIONATE
     Route: 065
  85. CALCIUM GLUBIONATE [Suspect]
     Active Substance: CALCIUM GLUBIONATE
     Route: 064
  86. CELEBREX [Suspect]
     Active Substance: CELECOXIB
  87. CELEBREX [Suspect]
     Active Substance: CELECOXIB
     Route: 065
  88. CELEBREX [Suspect]
     Active Substance: CELECOXIB
     Route: 064
  89. CELEBREX [Suspect]
     Active Substance: CELECOXIB
     Dosage: 2 DF, 1X/DAY
     Route: 064
  90. CETIRIZINE [Suspect]
     Active Substance: CETIRIZINE HYDROCHLORIDE
     Route: 065
  91. CETIRIZINE [Suspect]
     Active Substance: CETIRIZINE HYDROCHLORIDE
     Route: 064
  92. CIMZIA [Suspect]
     Active Substance: CERTOLIZUMAB PEGOL
     Route: 065
  93. CIMZIA [Suspect]
     Active Substance: CERTOLIZUMAB PEGOL
     Route: 064
  94. CORTISONE ACETATE [Suspect]
     Active Substance: CORTISONE ACETATE
     Route: 065
  95. CORTISONE ACETATE [Suspect]
     Active Substance: CORTISONE ACETATE
     Route: 064
  96. DOMPERIDONE MALEATE [Suspect]
     Active Substance: DOMPERIDONE MALEATE
     Route: 065
  97. DOMPERIDONE MALEATE [Suspect]
     Active Substance: DOMPERIDONE MALEATE
     Route: 064
  98. ERGOCALCIFEROL [Suspect]
     Active Substance: ERGOCALCIFEROL
     Route: 065
  99. ERGOCALCIFEROL [Suspect]
     Active Substance: ERGOCALCIFEROL
     Route: 064
  100. FLUMETHASONE [Suspect]
     Active Substance: FLUMETHASONE
     Route: 065
  101. FLUMETHASONE [Suspect]
     Active Substance: FLUMETHASONE
     Route: 064
  102. FLUMETHASONE PIVALATE [Suspect]
     Active Substance: FLUMETHASONE PIVALATE
     Route: 065
  103. FLUMETHASONE PIVALATE [Suspect]
     Active Substance: FLUMETHASONE PIVALATE
     Route: 064
  104. FOLIC ACID [Suspect]
     Active Substance: FOLIC ACID
     Route: 065
  105. FOLIC ACID [Suspect]
     Active Substance: FOLIC ACID
     Route: 064
  106. FOSAMAX [Suspect]
     Active Substance: ALENDRONATE SODIUM
     Route: 065
  107. FOSAMAX [Suspect]
     Active Substance: ALENDRONATE SODIUM
     Route: 064
  108. HAIR KERATIN AMINO ACIDS GOLD COMPLEX [Suspect]
     Active Substance: HAIR KERATIN AMINO ACIDS GOLD COMPLEX
     Route: 065
  109. HAIR KERATIN AMINO ACIDS GOLD COMPLEX [Suspect]
     Active Substance: HAIR KERATIN AMINO ACIDS GOLD COMPLEX
     Route: 064
  110. GOLD SODIUM THIOMALATE [Suspect]
     Active Substance: GOLD SODIUM THIOMALATE
     Route: 065
  111. GOLD SODIUM THIOMALATE [Suspect]
     Active Substance: GOLD SODIUM THIOMALATE
     Route: 064
  112. HUMIRA [Suspect]
     Active Substance: ADALIMUMAB
     Route: 065
  113. HUMIRA [Suspect]
     Active Substance: ADALIMUMAB
     Route: 064
  114. HYDROCORTISONE PROBUTATE [Suspect]
     Active Substance: HYDROCORTISONE PROBUTATE
     Route: 065
  115. HYDROCORTISONE PROBUTATE [Suspect]
     Active Substance: HYDROCORTISONE PROBUTATE
     Route: 064
  116. HYDROXYCHLOROQUINE [Suspect]
     Active Substance: HYDROXYCHLOROQUINE
     Route: 065
  117. HYDROXYCHLOROQUINE [Suspect]
     Active Substance: HYDROXYCHLOROQUINE
     Route: 064
  118. HYDROXYCHLOROQUINE SULFATE [Suspect]
     Active Substance: HYDROXYCHLOROQUINE SULFATE
     Route: 065
  119. HYDROXYCHLOROQUINE SULFATE [Suspect]
     Active Substance: HYDROXYCHLOROQUINE SULFATE
     Route: 064
  120. ISOPROPYL ALCOHOL [Suspect]
     Active Substance: ISOPROPYL ALCOHOL
  121. ISOPROPYL ALCOHOL [Suspect]
     Active Substance: ISOPROPYL ALCOHOL
     Route: 064
  122. LAMICTAL [Suspect]
     Active Substance: LAMOTRIGINE
     Route: 065
  123. LAMICTAL [Suspect]
     Active Substance: LAMOTRIGINE
     Route: 064
  124. MAGNESIUM CITRATE [Suspect]
     Active Substance: MAGNESIUM CITRATE
     Route: 065
  125. MINOCYCLINE [Suspect]
     Active Substance: MINOCYCLINE HYDROCHLORIDE
  126. MINOCYCLINE [Suspect]
     Active Substance: MINOCYCLINE HYDROCHLORIDE
     Route: 064
  127. MINOCYCLINE HYDROCHLORIDE [Suspect]
     Active Substance: MINOCYCLINE HYDROCHLORIDE
  128. MINOCYCLINE HYDROCHLORIDE [Suspect]
     Active Substance: MINOCYCLINE HYDROCHLORIDE
     Route: 064
  129. MYOCHRYSINE [Suspect]
     Active Substance: GOLD SODIUM THIOMALATE
  130. MYOCHRYSINE [Suspect]
     Active Substance: GOLD SODIUM THIOMALATE
     Route: 064
  131. MYRBETRIQ [Suspect]
     Active Substance: MIRABEGRON
  132. MYRBETRIQ [Suspect]
     Active Substance: MIRABEGRON
     Route: 064
  133. NAPROXEN [Suspect]
     Active Substance: NAPROXEN
     Route: 065
  134. NAPROXEN [Suspect]
     Active Substance: NAPROXEN
     Route: 064
  135. NUCALA [Suspect]
     Active Substance: MEPOLIZUMAB
     Route: 065
  136. NUCALA [Suspect]
     Active Substance: MEPOLIZUMAB
     Route: 064
  137. ORENCIA [Suspect]
     Active Substance: ABATACEPT
     Route: 065
  138. ORENCIA [Suspect]
     Active Substance: ABATACEPT
     Route: 064
  139. OXYCODONE TEREPHTHALATE [Suspect]
     Active Substance: OXYCODONE TEREPHTHALATE
     Route: 065
  140. OXYCODONE TEREPHTHALATE [Suspect]
     Active Substance: OXYCODONE TEREPHTHALATE
     Route: 064
  141. PERIOGARD [Suspect]
     Active Substance: CHLORHEXIDINE GLUCONATE
     Route: 065
  142. PERIOGARD [Suspect]
     Active Substance: CHLORHEXIDINE GLUCONATE
     Route: 064
  143. PHTHALYLSULFATHIAZOLE [Suspect]
     Active Substance: PHTHALYLSULFATHIAZOLE
  144. PHTHALYLSULFATHIAZOLE [Suspect]
     Active Substance: PHTHALYLSULFATHIAZOLE
     Route: 064
  145. PREDNISONE [Suspect]
     Active Substance: PREDNISONE
  146. PREDNISONE [Suspect]
     Active Substance: PREDNISONE
     Route: 064
  147. PSEUDOEPHEDRINE [Suspect]
     Active Substance: PSEUDOEPHEDRINE
  148. PSEUDOEPHEDRINE [Suspect]
     Active Substance: PSEUDOEPHEDRINE
     Route: 064
  149. RAMIPRIL [Suspect]
     Active Substance: RAMIPRIL
  150. RAMIPRIL [Suspect]
     Active Substance: RAMIPRIL
     Route: 064
  151. CETIRIZINE HYDROCHLORIDE\PSEUDOEPHEDRINE HYDROCHLORIDE [Suspect]
     Active Substance: CETIRIZINE HYDROCHLORIDE\PSEUDOEPHEDRINE HYDROCHLORIDE
  152. CETIRIZINE HYDROCHLORIDE\PSEUDOEPHEDRINE HYDROCHLORIDE [Suspect]
     Active Substance: CETIRIZINE HYDROCHLORIDE\PSEUDOEPHEDRINE HYDROCHLORIDE
     Route: 064
  153. SIMPONI [Suspect]
     Active Substance: GOLIMUMAB
  154. SIMPONI [Suspect]
     Active Substance: GOLIMUMAB
     Route: 064
  155. TOPIRAMATE [Suspect]
     Active Substance: TOPIRAMATE
  156. ZINC [Suspect]
     Active Substance: ZINC
  157. DESOXIMETASONE [Suspect]
     Active Substance: DESOXIMETASONE
  158. DESOXIMETASONE [Suspect]
     Active Substance: DESOXIMETASONE
     Route: 064
  159. NAPROXEN SODIUM [Suspect]
     Active Substance: NAPROXEN SODIUM
     Route: 065
  160. NAPROXEN SODIUM [Suspect]
     Active Substance: NAPROXEN SODIUM
     Route: 064
  161. TRUXIMA [Suspect]
     Active Substance: RITUXIMAB-ABBS
     Route: 064
  162. TRUXIMA [Suspect]
     Active Substance: RITUXIMAB-ABBS
     Route: 064
  163. TRUXIMA [Suspect]
     Active Substance: RITUXIMAB-ABBS
     Route: 064
  164. TRUXIMA [Suspect]
     Active Substance: RITUXIMAB-ABBS
     Route: 064
  165. TRUXIMA [Suspect]
     Active Substance: RITUXIMAB-ABBS
     Route: 064
  166. TRUXIMA [Suspect]
     Active Substance: RITUXIMAB-ABBS
     Route: 064
  167. TRUXIMA [Suspect]
     Active Substance: RITUXIMAB-ABBS
     Route: 064
  168. TRUXIMA [Suspect]
     Active Substance: RITUXIMAB-ABBS
     Route: 064

REACTIONS (3)
  - Foetal exposure during pregnancy [Unknown]
  - Congenital anomaly [Unknown]
  - Maternal exposure during pregnancy [Unknown]
